FAERS Safety Report 17115805 (Version 1)
Quarter: 2019Q4

REPORT INFORMATION
  Report Type: Spontaneous
  Country: US (occurrence: US)
  Receive Date: 20191204
  Receipt Date: 20191204
  Transmission Date: 20200122
  Serious: Yes (Other)
  Sender: FDA-Public Use
  Company Number: None

PATIENT
  Age: 75 Year
  Sex: Female
  Weight: 76.32 kg

DRUGS (13)
  1. BIOTIN [Concomitant]
     Active Substance: BIOTIN
  2. AMOXICILLIN. [Concomitant]
     Active Substance: AMOXICILLIN
  3. FLAGYL [Concomitant]
     Active Substance: METRONIDAZOLE\METRONIDAZOLE HYDROCHLORIDE
  4. MULTIVITAMIN [Concomitant]
     Active Substance: VITAMINS
  5. SINGULAIR [Concomitant]
     Active Substance: MONTELUKAST SODIUM
  6. ASPIRIN. [Concomitant]
     Active Substance: ASPIRIN
  7. CALCIUM + D [Concomitant]
     Active Substance: CALCIUM\VITAMIN D
  8. LETROZOLE. [Concomitant]
     Active Substance: LETROZOLE
  9. IBRANCE [Suspect]
     Active Substance: PALBOCICLIB
     Indication: BREAST CANCER
     Route: 048
     Dates: start: 20190409
  10. ARIMIDEX [Concomitant]
     Active Substance: ANASTROZOLE
  11. CELECOXIB. [Concomitant]
     Active Substance: CELECOXIB
  12. VITAMIN D 1000IU [Concomitant]
  13. IBRANCE [Suspect]
     Active Substance: PALBOCICLIB
     Indication: BONE CANCER
     Route: 048
     Dates: start: 20190409

REACTIONS (1)
  - Stomatitis [None]

NARRATIVE: CASE EVENT DATE: 20191204
